FAERS Safety Report 24192282 (Version 8)
Quarter: 2025Q3

REPORT INFORMATION
  Report Type: Spontaneous
  Country: US (occurrence: US)
  Receive Date: 20240809
  Receipt Date: 20250710
  Transmission Date: 20251020
  Serious: No
  Sender: BIOGEN
  Company Number: US-BIOGEN-2024BI01277048

PATIENT
  Sex: Female

DRUGS (1)
  1. TYSABRI [Suspect]
     Active Substance: NATALIZUMAB
     Indication: Multiple sclerosis
     Dosage: INFUSED OVER 1 HOUR
     Route: 050
     Dates: start: 20110415, end: 202407

REACTIONS (8)
  - Product dose omission issue [Unknown]
  - White blood cell morphology abnormal [Unknown]
  - Multiple sclerosis [Unknown]
  - Balance disorder [Unknown]
  - Malaise [Unknown]
  - Red blood cell nucleated morphology present [Unknown]
  - Blood bilirubin increased [Unknown]
  - Cataract [Recovered/Resolved]

NARRATIVE: CASE EVENT DATE: 20240101
